FAERS Safety Report 4510275-6 (Version None)
Quarter: 2004Q4

REPORT INFORMATION
  Report Type: 
  Country: None (occurrence: None)
  Receive Date: 20041122
  Receipt Date: 20041108
  Transmission Date: 20050328
  Serious: Yes (Hospitalization, Disabling, Other)
  Sender: FDA-Public Use
  Company Number: 2004091174

PATIENT
  Sex: Female

DRUGS (2)
  1. ZYRTEC [Suspect]
     Indication: PNEUMONIA MYCOPLASMAL
     Dosage: 1 IN 1 D, ORAL
     Route: 048
     Dates: start: 20040101, end: 20040101
  2. CONJUGATED ESTROGENS [Concomitant]

REACTIONS (5)
  - ARTHRALGIA [None]
  - CARDIAC DISORDER [None]
  - JOINT SPRAIN [None]
  - PAIN [None]
  - WHEELCHAIR USER [None]
